FAERS Safety Report 10259180 (Version 2)
Quarter: 2014Q2

REPORT INFORMATION
  Report Type: Spontaneous
  Country: US (occurrence: US)
  Receive Date: 20140625
  Receipt Date: 20140625
  Transmission Date: 20141212
  Serious: No
  Sender: FDA-Public Use
  Company Number: US-ASTELLAS-2013US011934

PATIENT
  Age: 65 Year
  Sex: Female
  Weight: 51 kg

DRUGS (4)
  1. VESICARE [Suspect]
     Indication: HYPERTONIC BLADDER
     Route: 048
     Dates: start: 20130815
  2. MYSOLINE [Concomitant]
     Indication: TREMOR
     Route: 048
  3. PROTONIX [Concomitant]
     Indication: BARRETT^S OESOPHAGUS
     Route: 048
  4. CRESTOR [Concomitant]
     Indication: BLOOD CHOLESTEROL
     Route: 048

REACTIONS (1)
  - Nasopharyngitis [Unknown]
